FAERS Safety Report 10033301 (Version 2)
Quarter: 2014Q2

REPORT INFORMATION
  Report Type: Spontaneous
  Country: US (occurrence: US)
  Receive Date: 20140324
  Receipt Date: 20140401
  Transmission Date: 20141212
  Serious: Yes (Death)
  Sender: FDA-Public Use
  Company Number: US-ROCHE-1370926

PATIENT
  Age: 76 Year
  Sex: Female
  Weight: 57.66 kg

DRUGS (11)
  1. XELODA [Suspect]
     Indication: PANCREATIC CARCINOMA
     Dosage: 2 TABLETS TWICE IN A DAY.
     Route: 048
     Dates: start: 20131212
  2. XELODA [Suspect]
     Dosage: 07 DAYS ON 07 DAYS OFF
     Route: 048
     Dates: start: 20140101
  3. ALBUTEROL [Concomitant]
     Indication: CHRONIC OBSTRUCTIVE PULMONARY DISEASE
     Route: 048
     Dates: start: 20120702
  4. ASPIRIN [Concomitant]
     Route: 048
     Dates: start: 20121116
  5. LUNESTA [Concomitant]
     Dosage: 1-2 MG
     Route: 048
     Dates: start: 20130322
  6. PRANDIN [Concomitant]
     Route: 048
  7. PREDNISONE [Concomitant]
     Route: 048
  8. PROCHLORPERAZINE [Concomitant]
     Route: 048
  9. SPIRIVA [Concomitant]
     Route: 048
  10. XANAX [Concomitant]
     Route: 048
  11. DILAUDID [Concomitant]
     Indication: PAIN
     Dosage: 2-4 MG
     Route: 048
     Dates: start: 20131011

REACTIONS (2)
  - Chronic obstructive pulmonary disease [Fatal]
  - Pancreatic carcinoma [Fatal]
